FAERS Safety Report 7521796-6 (Version None)
Quarter: 2011Q2

REPORT INFORMATION
  Report Type: 
  Country: None (occurrence: None)
  Receive Date: 20110603
  Receipt Date: 20110531
  Transmission Date: 20111010
  Serious: Yes (Death)
  Sender: FDA-Public Use
  Company Number: PHHY2011CA46320

PATIENT
  Sex: Male

DRUGS (4)
  1. RESTORIL [Concomitant]
     Dosage: 30 MG, UNK
  2. CLOZARIL [Suspect]
     Indication: SCHIZOAFFECTIVE DISORDER
     Dosage: 300 MG, UNK
     Route: 048
     Dates: start: 20000301, end: 20110512
  3. CLONAZEPAM [Concomitant]
     Dosage: 0.5 MG, BID
  4. LOXAPINE HCL [Concomitant]
     Dosage: 10 MG, QHS

REACTIONS (1)
  - DEATH [None]
